FAERS Safety Report 10796639 (Version 1)
Quarter: 2015Q1

REPORT INFORMATION
  Report Type: Spontaneous
  Country: US (occurrence: US)
  Receive Date: 20150216
  Receipt Date: 20150216
  Transmission Date: 20150721
  Serious: No
  Sender: FDA-Public Use
  Company Number: US-009507513-1502USA006158

PATIENT
  Sex: Female

DRUGS (8)
  1. NEURONTIN [Suspect]
     Active Substance: GABAPENTIN
     Dosage: UNK
  2. LUNESTA [Suspect]
     Active Substance: ESZOPICLONE
     Dosage: UNK
  3. REMERON [Suspect]
     Active Substance: MIRTAZAPINE
     Dosage: 45 MG, HS
     Route: 048
  4. TRAZODONE HYDROCHLORIDE. [Suspect]
     Active Substance: TRAZODONE HYDROCHLORIDE
     Dosage: UNK
  5. MELATONIN [Suspect]
     Active Substance: MELATONIN
     Dosage: UNK
  6. TOPAMAX [Suspect]
     Active Substance: TOPIRAMATE
     Dosage: UNK
  7. SONATA [Suspect]
     Active Substance: ZALEPLON
     Dosage: UNK
  8. AMBIEN [Suspect]
     Active Substance: ZOLPIDEM TARTRATE
     Dosage: UNK

REACTIONS (1)
  - Drug ineffective [Unknown]
